FAERS Safety Report 4472169-4 (Version None)
Quarter: 2004Q4

REPORT INFORMATION
  Report Type: 
  Country: None (occurrence: None)
  Receive Date: 20041012
  Receipt Date: 20041004
  Transmission Date: 20050328
  Serious: Yes (Hospitalization)
  Sender: FDA-Public Use
  Company Number: BR-MERCK-0410BRA00093

PATIENT
  Age: 63 Year
  Sex: Female

DRUGS (2)
  1. VIOXX [Suspect]
     Indication: PAIN
     Route: 048
     Dates: start: 20040601, end: 20040601
  2. VIOXX [Suspect]
     Indication: SPINAL FRACTURE
     Route: 048
     Dates: start: 20040601, end: 20040601

REACTIONS (4)
  - CEREBROVASCULAR ACCIDENT [None]
  - PALPITATIONS [None]
  - PNEUMONIA [None]
  - VOMITING [None]
